FAERS Safety Report 5237316-5 (Version None)
Quarter: 2007Q1

REPORT INFORMATION
  Report Type: 
  Country: None (occurrence: None)
  Receive Date: 20070213
  Receipt Date: 20061024
  Transmission Date: 20070707
  Serious: No
  Sender: FDA-Public Use
  Company Number: US-BRISTOL-MYERS SQUIBB COMPANY-13555180

PATIENT

DRUGS (1)
  1. BICNU [Suspect]

REACTIONS (1)
  - RASH [None]
